FAERS Safety Report 8746376 (Version 2)
Quarter: 2014Q3

REPORT INFORMATION
  Report Type: Spontaneous
  Country: US (occurrence: US)
  Receive Date: 20120827
  Receipt Date: 20140821
  Transmission Date: 20150326
  Serious: Yes (Hospitalization, Other)
  Sender: FDA-Public Use
  Company Number: US-US-EMD SERONO, INC.-7155919

PATIENT
  Sex: Female

DRUGS (2)
  1. REBIF [Suspect]
     Active Substance: INTERFERON BETA-1A
     Route: 058
     Dates: start: 20071005, end: 20120704
  2. REBIF [Suspect]
     Active Substance: INTERFERON BETA-1A
     Indication: MULTIPLE SCLEROSIS
     Route: 058
     Dates: start: 20060517, end: 20061205

REACTIONS (8)
  - Encephalopathy [Recovered/Resolved]
  - Urinary tract infection [Unknown]
  - Immunodeficiency [Unknown]
  - Blood pressure increased [Unknown]
  - Multiple sclerosis [Not Recovered/Not Resolved]
  - Neuropathy peripheral [Not Recovered/Not Resolved]
  - Injection site infection [Unknown]
  - Pyrexia [Unknown]

NARRATIVE: CASE EVENT DATE: 2010
